FAERS Safety Report 5323162-0 (Version None)
Quarter: 2007Q2

REPORT INFORMATION
  Report Type: 
  Country: None (occurrence: None)
  Receive Date: 20070220
  Receipt Date: 20061116
  Transmission Date: 20071010
  Serious: No
  Sender: FDA-Public Use
  Company Number: WAES 0611USA05129

PATIENT
  Age: 76 Year
  Sex: Male
  Weight: 75.2971 kg

DRUGS (2)
  1. JANUVIA [Suspect]
     Indication: DIABETES MELLITUS NON-INSULIN-DEPENDENT
     Dosage: 100 MG/DAILY/PO
     Route: 048
     Dates: start: 20061109, end: 20061117
  2. METFORMIN HCL [Concomitant]

REACTIONS (5)
  - ANAEMIA [None]
  - BLOOD GLUCOSE INCREASED [None]
  - DIZZINESS [None]
  - EPSTEIN-BARR VIRUS INFECTION [None]
  - HYPOTHYROIDISM [None]
